FAERS Safety Report 20378814 (Version 1)
Quarter: 2022Q1

REPORT INFORMATION
  Report Type: Spontaneous
  Country: AU (occurrence: AU)
  Receive Date: 20220126
  Receipt Date: 20220126
  Transmission Date: 20220423
  Serious: Yes (Other)
  Sender: FDA-Public Use
  Company Number: AU-PFIZER INC-202200065111

PATIENT
  Age: 70 Year
  Sex: Male

DRUGS (2)
  1. SULFASALAZINE [Suspect]
     Active Substance: SULFASALAZINE
     Indication: Rheumatoid arthritis
     Dosage: 1000 MG, 2X/DAY
     Route: 048
  2. SULFASALAZINE [Suspect]
     Active Substance: SULFASALAZINE
     Dosage: 500 MG IN THE MORNING AND 1000 MG AT NIGHT
     Route: 048

REACTIONS (4)
  - Pulmonary thrombosis [Unknown]
  - Arrhythmia [Unknown]
  - Neutrophil count decreased [Unknown]
  - Vitamin B complex deficiency [Unknown]
